FAERS Safety Report 25268770 (Version 1)
Quarter: 2025Q2

REPORT INFORMATION
  Report Type: Spontaneous
  Country: US (occurrence: None)
  Receive Date: 20250503
  Receipt Date: 20250503
  Transmission Date: 20250716
  Serious: Yes (Death)
  Sender: FDA-CTU
  Company Number: None

PATIENT
  Age: 69 Year
  Sex: Male

DRUGS (1)
  1. OFEV [Suspect]
     Active Substance: NINTEDANIB
     Indication: Idiopathic pulmonary fibrosis
     Dosage: 150MG BID ORAL?
     Route: 048
     Dates: start: 20220713, end: 20240112

REACTIONS (4)
  - Idiopathic pulmonary fibrosis [None]
  - Left ventricular hypertrophy [None]
  - Diastolic dysfunction [None]
  - Unresponsive to stimuli [None]

NARRATIVE: CASE EVENT DATE: 20240119
